FAERS Safety Report 9547190 (Version 1)
Quarter: 2013Q2

REPORT INFORMATION
  Report Type: Spontaneous
  Country: US (occurrence: None)
  Receive Date: 20130524
  Receipt Date: 20130524
  Transmission Date: 20140414
  Serious: No
  Sender: FDA-Public Use
  Company Number: PHEH2012US024221

PATIENT
  Age: 40 Year
  Sex: Female
  Weight: 68.9 kg

DRUGS (6)
  1. GILENYA [Suspect]
     Indication: MULTIPLE SCLEROSIS
     Route: 048
     Dates: start: 20121022
  2. SYNTHROID (LEVOTHYROXINE SODIUM), 0.5MG [Concomitant]
  3. BACLOFEN [Concomitant]
  4. PREDSONE [Concomitant]
  5. WELLBUTRIN XL (BUPROPIONYDROCHLORIDE) [Concomitant]
  6. NEURONTIN (GABAPENTIN) [Concomitant]

REACTIONS (6)
  - Chest discomfort [None]
  - Chest pain [None]
  - Hypotension [None]
  - Muscular weakness [None]
  - Dizziness [None]
  - Inappropriate schedule of drug administration [None]
